FAERS Safety Report 22138863 (Version 3)
Quarter: 2023Q2

REPORT INFORMATION
  Report Type: Other
  Country: PK (occurrence: None)
  Receive Date: 20230327
  Receipt Date: 20230419
  Transmission Date: 20230721
  Serious: Yes (Death)
  Sender: FDA-Public Use
  Company Number: PK-ROCHE-3315355

PATIENT
  Age: 66 Year
  Sex: Male

DRUGS (1)
  1. RITUXIMAB [Suspect]
     Active Substance: RITUXIMAB
     Indication: Follicular lymphoma
     Route: 042
     Dates: start: 20220716

REACTIONS (1)
  - Full blood count abnormal [Fatal]

NARRATIVE: CASE EVENT DATE: 20220903
